FAERS Safety Report 5467532-9 (Version None)
Quarter: 2007Q3

REPORT INFORMATION
  Report Type: 
  Country: None (occurrence: None)
  Receive Date: 20070925
  Receipt Date: 20070608
  Transmission Date: 20080115
  Serious: No
  Sender: FDA-Public Use
  Company Number: US-BOEHRINGER INGELHEIM PHARMACEUTICALS, INC.-2006-BP-09464BP

PATIENT
  Sex: Female

DRUGS (30)
  1. MIRAPEX [Suspect]
     Indication: RESTLESS LEGS SYNDROME
     Route: 048
     Dates: start: 20040201, end: 20050701
  2. ATARAX [Concomitant]
     Indication: PRURITUS
     Dates: start: 19800808
  3. PERIACTIN [Concomitant]
     Dates: start: 19800815
  4. BENADRYL [Concomitant]
  5. CYTOMEL [Concomitant]
     Indication: ASTHENIA
     Dates: start: 20000101
  6. ZESTRIL [Concomitant]
     Indication: HYPERTENSION
     Dates: start: 20011221
  7. KLONOPIN [Concomitant]
     Indication: RESTLESS LEGS SYNDROME
     Dates: start: 20051128, end: 20060505
  8. LEXAPRO [Concomitant]
     Dates: start: 20021206
  9. TRAZODONE HCL [Concomitant]
     Route: 048
     Dates: start: 20030623
  10. DETROL LA [Concomitant]
     Dates: start: 20050324
  11. DITROPAN XL [Concomitant]
     Dates: start: 20050324
  12. COZAAR [Concomitant]
     Dates: start: 20070206
  13. WELLBUTRIN SR [Concomitant]
     Dates: start: 20000617
  14. REMERON [Concomitant]
     Dates: start: 20011024
  15. EFFEXOR [Concomitant]
     Dates: start: 20010706
  16. CELEXA [Concomitant]
     Indication: DEPRESSION
  17. PREMARIN [Concomitant]
     Indication: HORMONE THERAPY
  18. PROVIGIL [Concomitant]
     Indication: FATIGUE
     Dates: start: 20060810
  19. VIOXX [Concomitant]
  20. PRILOSEC [Concomitant]
     Indication: LARYNGITIS
  21. VITAMINS [Concomitant]
  22. CHONDO [Concomitant]
  23. TETANUS BOOSTER [Concomitant]
     Dates: start: 19950101
  24. HYDROCHLOROTHIAZIDE [Concomitant]
     Dates: start: 20030101, end: 20040108
  25. NEXIUM [Concomitant]
  26. ESTRACE VAG CREAM [Concomitant]
  27. DITROPAN XL [Concomitant]
     Route: 048
     Dates: start: 20050505
  28. AMBIEN [Concomitant]
     Indication: INSOMNIA
  29. ADVIL LIQUI-GELS [Concomitant]
     Indication: ARTHRALGIA
  30. STOOL SOFTENER [Concomitant]

REACTIONS (3)
  - DEPRESSION [None]
  - OBSESSIVE-COMPULSIVE DISORDER [None]
  - PATHOLOGICAL GAMBLING [None]
